FAERS Safety Report 15811957 (Version 1)
Quarter: 2019Q1

REPORT INFORMATION
  Report Type: Spontaneous
  Country: US (occurrence: US)
  Receive Date: 20190110
  Receipt Date: 20190110
  Transmission Date: 20190417
  Serious: Yes (Life-Threatening, Disabling)
  Sender: FDA-Public Use
  Company Number: None

PATIENT
  Age: 66 Year
  Sex: Male
  Weight: 92.25 kg

DRUGS (1)
  1. VICTOZA [Suspect]
     Active Substance: LIRAGLUTIDE
     Indication: DIABETES MELLITUS
     Dosage: ?          QUANTITY:1.8 INJECTION(S);?
     Route: 030
     Dates: start: 20180416, end: 20181124

REACTIONS (7)
  - Nausea [None]
  - Bedridden [None]
  - Impaired gastric emptying [None]
  - Pain [None]
  - Vomiting [None]
  - Discomfort [None]
  - Weight decreased [None]

NARRATIVE: CASE EVENT DATE: 20180930
